FAERS Safety Report 16844399 (Version 8)
Quarter: 2020Q1

REPORT INFORMATION
  Report Type: Report from Study
  Country: US (occurrence: US)
  Receive Date: 20190924
  Receipt Date: 20200113
  Transmission Date: 20200409
  Serious: Yes (Hospitalization, Other)
  Sender: FDA-Public Use
  Company Number: US-GLAXOSMITHKLINE-2019-TSO03040-US

PATIENT
  Age: 75 Year
  Sex: Female
  Weight: 52 kg

DRUGS (3)
  1. NIRAPARIB [Suspect]
     Active Substance: NIRAPARIB
     Indication: OVARIAN CANCER
     Dosage: 200 MG, QPM
     Route: 048
     Dates: start: 20190821
  2. NIRAPARIB [Suspect]
     Active Substance: NIRAPARIB
     Dosage: 100 MG, QD
     Route: 048
     Dates: start: 20191119
  3. IMODIUM [Concomitant]
     Active Substance: LOPERAMIDE HYDROCHLORIDE
     Indication: PRODUCT USED FOR UNKNOWN INDICATION
     Dosage: UNK

REACTIONS (26)
  - Insomnia [Not Recovered/Not Resolved]
  - Dizziness [Recovered/Resolved]
  - Stomatitis [Unknown]
  - Palpitations [Not Recovered/Not Resolved]
  - Fatigue [Not Recovered/Not Resolved]
  - Presyncope [Recovered/Resolved]
  - Balance disorder [Recovered/Resolved]
  - Feeling jittery [Recovering/Resolving]
  - Depression [Recovered/Resolved]
  - Blood pressure increased [Unknown]
  - Ileostomy [Recovered/Resolved]
  - Erythema [Unknown]
  - Coordination abnormal [Recovering/Resolving]
  - Chills [Unknown]
  - Arthritis [Unknown]
  - Nausea [Unknown]
  - Psychomotor hyperactivity [Recovered/Resolved]
  - Energy increased [Unknown]
  - Parkinsonian gait [Recovering/Resolving]
  - Flushing [Unknown]
  - Muscle strain [Unknown]
  - Headache [Unknown]
  - Anaemia [Recovered/Resolved]
  - Hyperaesthesia [Unknown]
  - Diarrhoea [Unknown]
  - Product dose omission [Unknown]

NARRATIVE: CASE EVENT DATE: 201908
